FAERS Safety Report 6348291-4 (Version None)
Quarter: 2009Q3

REPORT INFORMATION
  Report Type: 
  Country: None (occurrence: None)
  Receive Date: 20090908
  Receipt Date: 20090827
  Transmission Date: 20100115
  Serious: Yes (Other)
  Sender: FDA-Public Use
  Company Number: 2009009966

PATIENT
  Age: 72 Year
  Sex: Male

DRUGS (1)
  1. EFFENTORA (TABLETS) [Suspect]
     Indication: PAIN
     Dosage: 200 MCG (200 MCG, 1 IN 1 AS REQUIRED),SUBLINGUAL
     Route: 060
     Dates: end: 20090815

REACTIONS (3)
  - INCORRECT ROUTE OF DRUG ADMINISTRATION [None]
  - MEDICATION ERROR [None]
  - SWOLLEN TONGUE [None]
